FAERS Safety Report 7209572-5 (Version None)
Quarter: 2011Q1

REPORT INFORMATION
  Report Type: 
  Country: None (occurrence: None)
  Receive Date: 20110104
  Receipt Date: 20101224
  Transmission Date: 20110831
  Serious: Yes (Hospitalization)
  Sender: FDA-Public Use
  Company Number: IE-MEDIMMUNE-MEDI-0012101

PATIENT
  Sex: Male
  Weight: 4.98 kg

DRUGS (3)
  1. SYNAGIS [Suspect]
     Route: 030
     Dates: start: 20101117, end: 20101117
  2. STEROIDS [Concomitant]
  3. MULTIVITAMIN [Concomitant]

REACTIONS (1)
  - MALAISE [None]
